FAERS Safety Report 7015637-3 (Version None)
Quarter: 2010Q3

REPORT INFORMATION
  Report Type: 
  Country: None (occurrence: None)
  Receive Date: 20100927
  Receipt Date: 20100921
  Transmission Date: 20110219
  Serious: Yes (Hospitalization, Other)
  Sender: FDA-Public Use
  Company Number: US-BAYER-201016271BCC

PATIENT
  Age: 66 Year
  Sex: Female
  Weight: 58 kg

DRUGS (4)
  1. ALKA-SELTZER PLUS MUCUS + CONGESTION LIQUID GELS [Suspect]
     Indication: COUGH
     Dosage: UNIT DOSE: 1 DF
     Route: 048
     Dates: start: 20100406, end: 20100406
  2. ALEVE (CAPLET) [Concomitant]
     Indication: HEADACHE
     Route: 065
  3. ALKA-SELTZER ORIGINAL FAST RELIEF [Concomitant]
     Indication: DYSPEPSIA
     Dosage: UNIT DOSE: 1 DF
     Route: 065
  4. ASCORBIC ACID [Concomitant]
     Route: 065

REACTIONS (24)
  - ABDOMINAL DISTENSION [None]
  - ABDOMINAL PAIN [None]
  - ABDOMINAL PAIN UPPER [None]
  - ASTHENIA [None]
  - BALANCE DISORDER [None]
  - BLOOD LACTIC ACID INCREASED [None]
  - BLOOD PRESSURE DECREASED [None]
  - BURNING SENSATION [None]
  - FLATULENCE [None]
  - GASTROINTESTINAL NECROSIS [None]
  - HAEMATEMESIS [None]
  - HYPOTENSION [None]
  - INTESTINAL HAEMORRHAGE [None]
  - INTESTINAL ISCHAEMIA [None]
  - MELAENA [None]
  - MOBILITY DECREASED [None]
  - OROPHARYNGEAL PAIN [None]
  - PROCEDURAL PAIN [None]
  - RENAL FAILURE [None]
  - SKIN DISORDER [None]
  - SUPERFICIAL VEIN PROMINENCE [None]
  - TACHYCARDIA [None]
  - WEIGHT DECREASED [None]
  - WHITE BLOOD CELL COUNT INCREASED [None]
